FAERS Safety Report 10916418 (Version 1)
Quarter: 2015Q1

REPORT INFORMATION
  Report Type: Spontaneous
  Country: US (occurrence: US)
  Receive Date: 20150316
  Receipt Date: 20150316
  Transmission Date: 20150721
  Serious: No
  Sender: FDA-Public Use
  Company Number: US-009507513-1503USA005244

PATIENT
  Sex: Female

DRUGS (1)
  1. MIRALAX [Suspect]
     Active Substance: POLYETHYLENE GLYCOL 3350
     Indication: COLONOSCOPY
     Dosage: 119 G, ONCE
     Route: 048

REACTIONS (4)
  - Product use issue [Unknown]
  - Overdose [Unknown]
  - Drug prescribing error [Unknown]
  - Drug ineffective [Unknown]
